FAERS Safety Report 6751112-9 (Version None)
Quarter: 2010Q2

REPORT INFORMATION
  Report Type: 
  Country: None (occurrence: None)
  Receive Date: 20100602
  Receipt Date: 20100526
  Transmission Date: 20101027
  Serious: Yes (Other)
  Sender: FDA-Public Use
  Company Number: US-ASTRAZENECA-2010SE24224

PATIENT
  Age: 27 Year
  Sex: Female

DRUGS (4)
  1. MEROPENEM [Suspect]
     Route: 013
     Dates: start: 20100201, end: 20100201
  2. SODIUM CHLORIDE [Suspect]
     Route: 013
     Dates: start: 20100201, end: 20100201
  3. CIPROFLOXACIN IN DEXTROSE [Suspect]
     Route: 013
     Dates: start: 20100201, end: 20100201
  4. FENTANYL CITRATE [Suspect]
     Dosage: BY PHARMEDIUM
     Dates: start: 20100201

REACTIONS (3)
  - INCORRECT ROUTE OF DRUG ADMINISTRATION [None]
  - PULSE ABSENT [None]
  - SKIN DISCOLOURATION [None]
